FAERS Safety Report 8133856-X (Version None)
Quarter: 2012Q1

REPORT INFORMATION
  Report Type: 
  Country: None (occurrence: None)
  Receive Date: 20120213
  Receipt Date: 20120203
  Transmission Date: 20120608
  Serious: Yes (Life-Threatening, Hospitalization, Disabling, Other)
  Sender: FDA-Public Use
  Company Number: PT-MERCK-1107PRT00014

PATIENT
  Age: 13 Year
  Sex: Female
  Weight: 49 kg

DRUGS (6)
  1. SINGULAIR [Suspect]
     Indication: ASTHMA
     Route: 048
     Dates: start: 20100701, end: 20110419
  2. BUDESONIDE [Concomitant]
     Route: 065
  3. RANITIDINE [Concomitant]
     Route: 065
  4. ACETAMINOPHEN [Concomitant]
     Route: 065
  5. DOMPERIDONE [Concomitant]
     Route: 065
  6. GABAPENTIN [Concomitant]
     Route: 065

REACTIONS (4)
  - PAIN [None]
  - DEPRESSION [None]
  - PARALYSIS [None]
  - GUILLAIN-BARRE SYNDROME [None]
